FAERS Safety Report 24738299 (Version 5)
Quarter: 2025Q2

REPORT INFORMATION
  Report Type: Spontaneous
  Country: US (occurrence: US)
  Receive Date: 20241216
  Receipt Date: 20250423
  Transmission Date: 20250717
  Serious: No
  Sender: PFIZER
  Company Number: US-PFIZER INC-202400320348

PATIENT
  Age: 55 Year
  Sex: Male

DRUGS (1)
  1. GENOTROPIN [Suspect]
     Active Substance: SOMATROPIN
     Indication: Empty sella syndrome
     Dosage: 0.4 MG, DAILY
     Dates: start: 202410

REACTIONS (5)
  - Drug dose omission by device [Unknown]
  - Device issue [Unknown]
  - Needle issue [Unknown]
  - Device information output issue [Unknown]
  - Off label use [Unknown]
